FAERS Safety Report 5310974-2 (Version None)
Quarter: 2007Q2

REPORT INFORMATION
  Report Type: 
  Country: None (occurrence: None)
  Receive Date: 20070427
  Receipt Date: 20070427
  Transmission Date: 20071010
  Serious: Yes (Other)
  Sender: FDA-Public Use
  Company Number: None

PATIENT
  Age: 44 Year
  Sex: Female
  Weight: 71.6683 kg

DRUGS (3)
  1. JANUVIA [Suspect]
     Indication: DIABETES MELLITUS
     Dosage: 100 MG PO QD
     Route: 048
  2. METFORMIN HCL [Concomitant]
  3. LIPITOR [Concomitant]

REACTIONS (2)
  - DRUG INTERACTION [None]
  - DRUG SCREEN FALSE POSITIVE [None]
